FAERS Safety Report 11882794 (Version 1)
Quarter: 2015Q4

REPORT INFORMATION
  Report Type: Spontaneous
  Country: US (occurrence: US)
  Receive Date: 20151231
  Receipt Date: 20151231
  Transmission Date: 20160305
  Serious: Yes (Other)
  Sender: FDA-Public Use
  Company Number: US-BAUSCH-BL-2015-030667

PATIENT
  Age: 63 Year
  Sex: Male

DRUGS (3)
  1. RETISERT [Suspect]
     Active Substance: FLUOCINOLONE ACETONIDE
     Route: 065
  2. RETISERT [Suspect]
     Active Substance: FLUOCINOLONE ACETONIDE
     Route: 065
  3. RETISERT [Suspect]
     Active Substance: FLUOCINOLONE ACETONIDE
     Indication: SYMPATHETIC OPHTHALMIA
     Route: 065

REACTIONS (6)
  - Corneal endothelial cell loss [Unknown]
  - Eye complication associated with device [Unknown]
  - Device dislocation [Recovered/Resolved]
  - Eye disorder [Unknown]
  - Visual acuity reduced [Recovering/Resolving]
  - Corneal oedema [Recovering/Resolving]
